FAERS Safety Report 8520553-1 (Version None)
Quarter: 2012Q3

REPORT INFORMATION
  Report Type: 
  Country: None (occurrence: None)
  Receive Date: 20120719
  Receipt Date: 20120710
  Transmission Date: 20120928
  Serious: Yes (Other)
  Sender: FDA-Public Use
  Company Number: FR-NOVOPROD-354274

PATIENT
  Age: 19 Year
  Sex: Female

DRUGS (1)
  1. NORDITROPIN [Suspect]
     Indication: PRODUCT USED FOR UNKNOWN INDICATION
     Dosage: UNK
     Dates: start: 19990310, end: 20001101

REACTIONS (2)
  - THYROID CANCER [None]
  - NEURILEMMOMA MALIGNANT [None]
